FAERS Safety Report 16908542 (Version 1)
Quarter: 2019Q4

REPORT INFORMATION
  Report Type: Spontaneous
  Country: US (occurrence: US)
  Receive Date: 20191011
  Receipt Date: 20191011
  Transmission Date: 20200122
  Serious: No
  Sender: FDA-Public Use
  Company Number: US-009507513-1909USA005506

PATIENT
  Age: 55 Year
  Sex: Female

DRUGS (1)
  1. COZAAR [Suspect]
     Active Substance: LOSARTAN POTASSIUM
     Indication: GLOMERULONEPHRITIS MEMBRANOUS
     Dosage: 25 MILLIGRAM DAILY
     Route: 048

REACTIONS (1)
  - Off label use [Unknown]
